FAERS Safety Report 4382169-0 (Version None)
Quarter: 2004Q2

REPORT INFORMATION
  Report Type: 
  Country: None (occurrence: None)
  Receive Date: 20040618
  Receipt Date: 20040618
  Transmission Date: 20050107
  Serious: Yes (Other)
  Sender: FDA-Public Use
  Company Number: None

PATIENT
  Age: 79 Year
  Sex: Male
  Weight: 53.5 kg

DRUGS (4)
  1. OMEPRAZOLE [Suspect]
  2. FOSINOPRIL NA [Concomitant]
  3. METOPROLOL TARTRATE [Concomitant]
  4. TERAZOSIN HCL [Concomitant]

REACTIONS (1)
  - DIARRHOEA [None]
